FAERS Safety Report 14076438 (Version 1)
Quarter: 2017Q4

REPORT INFORMATION
  Report Type: Report from Study
  Country: US (occurrence: US)
  Receive Date: 20171011
  Receipt Date: 20171011
  Transmission Date: 20180321
  Serious: Yes (Death, Other)
  Sender: FDA-Public Use
  Company Number: US-TEVA-814022USA

PATIENT
  Sex: Male

DRUGS (1)
  1. CLOZAPINE. [Suspect]
     Active Substance: CLOZAPINE
     Indication: PSYCHOTIC DISORDER
     Route: 065

REACTIONS (6)
  - Adverse event [Unknown]
  - Psychotic disorder [Unknown]
  - Product use issue [Unknown]
  - Intentional product misuse [Unknown]
  - Death [Fatal]
  - Drug level increased [Unknown]
